FAERS Safety Report 22158515 (Version 1)
Quarter: 2023Q1

REPORT INFORMATION
  Report Type: Spontaneous
  Country: CN (occurrence: CN)
  Receive Date: 20230331
  Receipt Date: 20230331
  Transmission Date: 20230417
  Serious: Yes (Other)
  Sender: FDA-Public Use
  Company Number: CN-JNJFOC-20230366055

PATIENT

DRUGS (1)
  1. IBUPROFEN [Suspect]
     Active Substance: IBUPROFEN
     Indication: Patent ductus arteriosus
     Route: 048

REACTIONS (5)
  - Off label use [Unknown]
  - Gastrointestinal haemorrhage [Unknown]
  - Oliguria [Unknown]
  - Blood bilirubin increased [Unknown]
  - Therapeutic response unexpected [Unknown]
